FAERS Safety Report 10532820 (Version 1)
Quarter: 2014Q4

REPORT INFORMATION
  Report Type: Spontaneous
  Country: AR (occurrence: AR)
  Receive Date: 20141022
  Receipt Date: 20141022
  Transmission Date: 20150529
  Serious: Yes (Other)
  Sender: FDA-Public Use
  Company Number: AR-AMGEN-ARGSP2014081105

PATIENT
  Age: 71 Year
  Sex: Female

DRUGS (1)
  1. ENBREL [Suspect]
     Active Substance: ETANERCEPT
     Indication: RHEUMATOID ARTHRITIS
     Dosage: 25 MG, TWICE WEEKLY
     Route: 065
     Dates: start: 20060815

REACTIONS (3)
  - Decreased immune responsiveness [Recovered/Resolved]
  - Musculoskeletal disorder [Recovered/Resolved]
  - Arthropathy [Recovered/Resolved]

NARRATIVE: CASE EVENT DATE: 2013
